FAERS Safety Report 7615778-3 (Version None)
Quarter: 2011Q3

REPORT INFORMATION
  Report Type: 
  Country: None (occurrence: None)
  Receive Date: 20110715
  Receipt Date: 20110715
  Transmission Date: 20111222
  Serious: No
  Sender: FDA-Public Use
  Company Number: None

PATIENT
  Age: 69 Year
  Sex: Male
  Weight: 66.4 kg

DRUGS (1)
  1. MERCAPTOPURINE [Suspect]
     Indication: COLITIS ULCERATIVE
     Dosage: 100MG EVERY DAY PO
     Route: 048
     Dates: start: 20110104, end: 20110504

REACTIONS (2)
  - SKIN ULCER [None]
  - RASH [None]
